FAERS Safety Report 8543100-7 (Version None)
Quarter: 2012Q3

REPORT INFORMATION
  Report Type: 
  Country: None (occurrence: None)
  Receive Date: 20120727
  Receipt Date: 20110927
  Transmission Date: 20120928
  Serious: No
  Sender: FDA-Public Use
  Company Number: US-MYLANLABS-2011S1020346

PATIENT
  Age: 57 Year
  Sex: Female

DRUGS (2)
  1. LEVOTHYROXINE SODIUM [Suspect]
     Indication: THYROID DISORDER
     Route: 048
     Dates: start: 20110201, end: 20110801
  2. LEVOTHYROXINE SODIUM [Suspect]
     Route: 048
     Dates: start: 20110801, end: 20110901

REACTIONS (4)
  - DIZZINESS [None]
  - HYPERHIDROSIS [None]
  - PHOTOPHOBIA [None]
  - OEDEMA PERIPHERAL [None]
